FAERS Safety Report 12508229 (Version 2)
Quarter: 2016Q4

REPORT INFORMATION
  Report Type: Spontaneous
  Country: US (occurrence: US)
  Receive Date: 20160629
  Receipt Date: 20161111
  Transmission Date: 20170207
  Serious: No
  Sender: FDA-Public Use
  Company Number: US-GLAXOSMITHKLINE-US2016086629

PATIENT
  Age: 64 Year
  Sex: Female

DRUGS (2)
  1. ADVAIR DISKUS [Suspect]
     Active Substance: FLUTICASONE PROPIONATE\SALMETEROL XINAFOATE
     Indication: ASTHMA
  2. ADVAIR DISKUS [Suspect]
     Active Substance: FLUTICASONE PROPIONATE\SALMETEROL XINAFOATE
     Indication: PNEUMONIA
     Dosage: 2 PUFF(S), BID
     Route: 055
     Dates: start: 20160610

REACTIONS (6)
  - Hypersensitivity [Unknown]
  - Incorrect dose administered [Unknown]
  - Dysphonia [Unknown]
  - Pruritus [Unknown]
  - Drug hypersensitivity [Unknown]
  - Lip pruritus [Unknown]

NARRATIVE: CASE EVENT DATE: 20160613
